FAERS Safety Report 18675247 (Version 1)
Quarter: 2020Q4

REPORT INFORMATION
  Report Type: Spontaneous
  Country: US (occurrence: US)
  Receive Date: 20201228
  Receipt Date: 20201228
  Transmission Date: 20210114
  Serious: Yes (Death)
  Sender: FDA-Public Use
  Company Number: None

PATIENT
  Age: 55 Year
  Sex: Female
  Weight: 57.3 kg

DRUGS (1)
  1. ANDEXXA [Suspect]
     Active Substance: ANDEXANET ALFA
     Indication: PROCOAGULANT THERAPY
     Route: 042

REACTIONS (5)
  - Haemoglobin decreased [None]
  - Deep vein thrombosis [None]
  - Pulmonary embolism [None]
  - Respiratory distress [None]
  - Haematemesis [None]

NARRATIVE: CASE EVENT DATE: 20201222
